FAERS Safety Report 7182254-4 (Version None)
Quarter: 2010Q4

REPORT INFORMATION
  Report Type: 
  Country: None (occurrence: None)
  Receive Date: 20101221
  Receipt Date: 20100510
  Transmission Date: 20110411
  Serious: No
  Sender: FDA-Public Use
  Company Number: US-AMGEN-TCS406307

PATIENT

DRUGS (4)
  1. ENBREL [Suspect]
     Indication: PSORIASIS
     Dosage: 50 MG, 2 TIMES/WK
     Route: 058
     Dates: start: 20100312
  2. CALCIPOTRIENE [Concomitant]
     Dosage: UNK UNK, UNK
     Dates: start: 20100312
  3. FLUCINOLONE ACETONIDE [Concomitant]
     Dosage: UNK UNK, UNK
     Dates: start: 20100121, end: 20100312
  4. CALCIPOTRIENE/BETAMETHASONE DIPROPIONATE [Concomitant]
     Dosage: UNK UNK, UNK
     Dates: start: 20100121

REACTIONS (2)
  - INJECTION SITE ERYTHEMA [None]
  - INJECTION SITE REACTION [None]
